FAERS Safety Report 7830536-2 (Version None)
Quarter: 2011Q4

REPORT INFORMATION
  Report Type: 
  Country: None (occurrence: None)
  Receive Date: 20111021
  Receipt Date: 20111012
  Transmission Date: 20120403
  Serious: Yes (Hospitalization)
  Sender: FDA-Public Use
  Company Number: FR-JNJFOC-20111007241

PATIENT
  Sex: Female

DRUGS (10)
  1. ESCITALOPRAM OXALATE [Suspect]
     Indication: ALCOHOLISM
     Route: 048
     Dates: start: 20110713, end: 20110910
  2. IMOVANE [Concomitant]
     Route: 065
  3. HALDOL [Suspect]
     Indication: PRODUCT USED FOR UNKNOWN INDICATION
     Route: 065
  4. TRAMADOL HCL [Suspect]
     Indication: TOOTHACHE
     Dosage: TWICE DAILY
     Route: 048
     Dates: start: 20110907, end: 20110910
  5. OXAZEPAM [Concomitant]
     Route: 065
  6. VITAMIN B1 TAB [Concomitant]
     Route: 065
  7. ESCITALOPRAM OXALATE [Suspect]
     Indication: DEPRESSION
     Route: 048
     Dates: start: 20110713, end: 20110910
  8. NICOBION [Concomitant]
     Route: 065
  9. ZYPREXA [Suspect]
     Indication: PRODUCT USED FOR UNKNOWN INDICATION
     Route: 048
  10. VITAMIN B6 [Concomitant]
     Route: 065

REACTIONS (4)
  - GRAND MAL CONVULSION [None]
  - LOSS OF CONSCIOUSNESS [None]
  - HYPONATRAEMIA [None]
  - ALCOHOLISM [None]
